FAERS Safety Report 4664916-3 (Version None)
Quarter: 2005Q2

REPORT INFORMATION
  Report Type: 
  Country: None (occurrence: None)
  Receive Date: 20050517
  Receipt Date: 20050503
  Transmission Date: 20051028
  Serious: Yes (Death)
  Sender: FDA-Public Use
  Company Number: DE_041014538

PATIENT
  Age: 52 Year
  Sex: Male
  Weight: 93 kg

DRUGS (11)
  1. ZYPREXA [Suspect]
     Indication: AGGRESSION
     Dosage: 10 MG/1 DAY
     Dates: start: 20041022, end: 20041023
  2. ZYPREXA [Suspect]
     Indication: SCHIZOAFFECTIVE DISORDER
     Dosage: 10 MG/1 DAY
     Dates: start: 20041022, end: 20041023
  3. LORAZEPAM [Concomitant]
  4. VALPROIC ACID [Concomitant]
  5. FLUPHENAZINE [Concomitant]
  6. LYOGEN (FLUPHENAZINE DECAONATE) [Concomitant]
  7. TRUXAL (CHLORPROTHIXENE HYDROCHLORIDE) [Concomitant]
  8. DIPIPERON (PIMPAMPERONE HYDROCHLORIDE) [Concomitant]
  9. AKINETON [Concomitant]
  10. LEVOTHYROXINE SODIUM [Concomitant]
  11. CEXANE (ENOXAPARIN SODIUM) [Concomitant]

REACTIONS (2)
  - RESPIRATORY DISORDER [None]
  - SEDATION [None]
